FAERS Safety Report 6274130-6 (Version None)
Quarter: 2009Q3

REPORT INFORMATION
  Report Type: 
  Country: None (occurrence: None)
  Receive Date: 20090720
  Receipt Date: 20090714
  Transmission Date: 20100115
  Serious: Yes (Death, Hospitalization, Other)
  Sender: FDA-Public Use
  Company Number: PHHY2009JP21825

PATIENT
  Sex: Male
  Weight: 67 kg

DRUGS (11)
  1. LAMISIL [Suspect]
     Indication: TINEA INFECTION
     Dosage: 125 MG, QD
     Route: 048
     Dates: start: 20090421, end: 20090522
  2. PLAVIX [Suspect]
     Dosage: 300 MG, QD
     Route: 048
     Dates: start: 20090513, end: 20090513
  3. PLAVIX [Suspect]
     Dosage: 75 MG, QD
     Route: 048
     Dates: start: 20090514, end: 20090518
  4. LASIX [Concomitant]
     Dosage: 40 MG, UNK
     Route: 048
     Dates: end: 20090523
  5. LASIX [Concomitant]
     Dosage: 20 MG, UNK
     Route: 042
     Dates: start: 20090604
  6. NU-LOTAN [Concomitant]
     Dosage: 25 MG, UNK
     Route: 048
  7. SIGMART [Concomitant]
     Dosage: 15 MG, UNK
     Route: 048
  8. TAKEPRON [Concomitant]
     Dosage: 15 MG, UNK
     Route: 048
  9. ITOROL [Concomitant]
     Dosage: 10 MG, BID
     Route: 048
     Dates: start: 20090410, end: 20090522
  10. EPLERENONE [Concomitant]
     Dosage: 25 MG/DAY
     Route: 048
     Dates: start: 20090410, end: 20090522
  11. ALOSITOL [Concomitant]
     Dosage: UNK
     Route: 048
     Dates: end: 20090523

REACTIONS (19)
  - BLOOD BILIRUBIN INCREASED [None]
  - CARDIAC ARREST [None]
  - CHEST PAIN [None]
  - CHOLESTASIS [None]
  - CONTINUOUS HAEMODIAFILTRATION [None]
  - CORONARY ANGIOPLASTY [None]
  - CORONARY ARTERIAL STENT INSERTION [None]
  - HEPATIC ENZYME INCREASED [None]
  - HEPATIC FAILURE [None]
  - HEPATIC FUNCTION ABNORMAL [None]
  - HYPOALBUMINAEMIA [None]
  - JAUNDICE [None]
  - MULTI-ORGAN FAILURE [None]
  - PERITONEAL EFFUSION [None]
  - PLEURAL EFFUSION [None]
  - RENAL FAILURE [None]
  - RESPIRATORY FAILURE [None]
  - VENTRICULAR FIBRILLATION [None]
  - VENTRICULAR TACHYCARDIA [None]
